FAERS Safety Report 9244751 (Version 1)
Quarter: 2013Q1

REPORT INFORMATION
  Report Type: Spontaneous
  Country: US (occurrence: None)
  Receive Date: 20121123
  Receipt Date: 20121123
  Transmission Date: 20140127
  Serious: No
  Sender: FDA-Public Use
  Company Number: 361144

PATIENT
  Age: 57 Year
  Sex: Female

DRUGS (8)
  1. VICTOZA [Suspect]
     Indication: TYPE 2 DIABETES MELLITUS
     Route: 058
     Dates: start: 20120308, end: 20120913
  2. METFORMIN (METFORMIN) [Concomitant]
  3. ZOCOR (SIMVASTATIN) [Concomitant]
  4. SINGULAIR [Concomitant]
  5. CLONIDINE (CLONIDINE) [Concomitant]
  6. FLOVENT (FLUTICASONE PROPIONATE) [Concomitant]
  7. ALBUTEROL (SALBUTAMOL) [Concomitant]
  8. AMLODIPINE (AMLODIPINE) [Concomitant]

REACTIONS (1)
  - Dysphonia [None]
